FAERS Safety Report 13152178 (Version 2)
Quarter: 2017Q3

REPORT INFORMATION
  Report Type: Spontaneous
  Country: NO (occurrence: NO)
  Receive Date: 20170125
  Receipt Date: 20170914
  Transmission Date: 20171127
  Serious: Yes (Hospitalization, Other)
  Sender: FDA-Public Use
  Company Number: NO-MYLANLABS-2017M1004559

PATIENT
  Age: 23 Year
  Sex: Male

DRUGS (1)
  1. CLOZAPINE. [Suspect]
     Active Substance: CLOZAPINE
     Indication: SCHIZOPHRENIA
     Dosage: 300 MG, QD

REACTIONS (16)
  - Neuroleptic malignant syndrome [Unknown]
  - General physical health deterioration [Recovering/Resolving]
  - Prolonged expiration [Recovering/Resolving]
  - Lung infiltration [Recovering/Resolving]
  - Dyspnoea [Recovering/Resolving]
  - Ventricular hypokinesia [Unknown]
  - Pericardial effusion [Unknown]
  - Rales [Recovering/Resolving]
  - Interstitial lung disease [Recovered/Resolved]
  - Chest discomfort [Recovering/Resolving]
  - Tachycardia [Unknown]
  - Myocarditis [Recovered/Resolved]
  - Cardiomyopathy [Not Recovered/Not Resolved]
  - Influenza like illness [Recovering/Resolving]
  - Tricuspid valve incompetence [Unknown]
  - Mitral valve incompetence [Unknown]
